FAERS Safety Report 8921951 (Version 1)
Quarter: 2012Q4

REPORT INFORMATION
  Report Type: Spontaneous
  Country: US (occurrence: None)
  Receive Date: 20121119
  Receipt Date: 20121119
  Transmission Date: 20130627
  Serious: Yes (Other)
  Sender: FDA-Public Use
  Company Number: None

PATIENT
  Age: 29 Year
  Sex: Female
  Weight: 68.49 kg

DRUGS (1)
  1. MIRENA LOVONORGESTREL 52MG BAYER HEALTHCARE PHARMACEUTICALS I [Suspect]
     Indication: BIRTH CONTROL
     Dosage: .20mg daily intra-uterine
     Route: 015
     Dates: start: 20121102, end: 20121113

REACTIONS (8)
  - Abdominal distension [None]
  - Abdominal pain [None]
  - Feeling cold [None]
  - Hypoaesthesia [None]
  - Sensation of heaviness [None]
  - Paraesthesia [None]
  - Insomnia [None]
  - Haemorrhage [None]
